FAERS Safety Report 10631153 (Version 2)
Quarter: 2014Q4

REPORT INFORMATION
  Report Type: Spontaneous
  Country: US (occurrence: US)
  Receive Date: 20141205
  Receipt Date: 20141205
  Transmission Date: 20150529
  Serious: No
  Sender: FDA-Public Use
  Company Number: US-BRISTOL-MYERS SQUIBB COMPANY-20811857

PATIENT
  Sex: Female

DRUGS (2)
  1. METFORMIN HCL [Suspect]
     Active Substance: METFORMIN HYDROCHLORIDE
  2. VICTOZA [Suspect]
     Active Substance: LIRAGLUTIDE

REACTIONS (6)
  - Nausea [Unknown]
  - Pain [Unknown]
  - Vomiting [Unknown]
  - Pollakiuria [Unknown]
  - Blood glucose increased [Recovered/Resolved]
  - Hepatic enzyme increased [Unknown]
